FAERS Safety Report 8970247 (Version 1)
Quarter: 2012Q4

REPORT INFORMATION
  Report Type: 
  Country: US (occurrence: US)
  Receive Date: 20121218
  Receipt Date: 20121218
  Transmission Date: 20130627
  Serious: No
  Sender: FDA-Public Use
  Company Number: US-BRISTOL-MYERS SQUIBB COMPANY-16490781

PATIENT
  Age: 30 Year
  Sex: Female
  Weight: 77 kg

DRUGS (3)
  1. ABILIFY [Suspect]
     Indication: BIPOLAR DISORDER
     Dates: start: 201202
  2. ABILIFY [Suspect]
     Indication: DEPRESSION
     Dates: start: 201202
  3. CELEXA [Suspect]

REACTIONS (2)
  - False positive investigation result [Unknown]
  - Personality change [Unknown]
